FAERS Safety Report 12798777 (Version 2)
Quarter: 2016Q4

REPORT INFORMATION
  Report Type: Spontaneous
  Country: BE (occurrence: BE)
  Receive Date: 20160930
  Receipt Date: 20161027
  Transmission Date: 20170207
  Serious: Yes (Other)
  Sender: FDA-Public Use
  Company Number: BE-ASTRAZENECA-2016SE92599

PATIENT
  Age: 64 Year
  Sex: Female
  Weight: 132 kg

DRUGS (9)
  1. ASAFLOW [Concomitant]
     Active Substance: ASPIRIN
     Dosage: 80.0MG UNKNOWN
  2. CRESTOR [Concomitant]
     Active Substance: ROSUVASTATIN CALCIUM
     Indication: BLOOD CHOLESTEROL ABNORMAL
     Dosage: 10.0MG UNKNOWN
     Dates: start: 2012
  3. OTHER MEDICATIONS [Concomitant]
     Active Substance: UNSPECIFIED INGREDIENT
  4. GLUCOPHAGE [Concomitant]
     Active Substance: METFORMIN HYDROCHLORIDE
  5. BYDUREON [Suspect]
     Active Substance: EXENATIDE
     Indication: TYPE 2 DIABETES MELLITUS
     Route: 065
     Dates: start: 20151015
  6. CO-BISOPROLOL [Concomitant]
     Indication: HYPERTENSION
  7. LIPANTHYL [Concomitant]
     Active Substance: FENOFIBRATE
     Indication: HYPERLIPIDAEMIA
  8. UNI DIAMICRON [Concomitant]
     Active Substance: GLICLAZIDE
  9. SEVIKAR [Concomitant]
     Active Substance: AMLODIPINE BESYLATE\OLMESARTAN MEDOXOMIL
     Indication: HYPERTENSION
     Dosage: 20/5, 1 DF, DAILY

REACTIONS (2)
  - Eosinophilia [Unknown]
  - Leukocytosis [Unknown]
